FAERS Safety Report 7231686-4 (Version None)
Quarter: 2011Q1

REPORT INFORMATION
  Report Type: 
  Country: None (occurrence: None)
  Receive Date: 20110118
  Receipt Date: 20110104
  Transmission Date: 20110831
  Serious: No
  Sender: FDA-Public Use
  Company Number: US-B.I. PHARMACEUTICALS,INC./RIDGEFIELD-2011-BP-00581BP

PATIENT
  Sex: Female

DRUGS (18)
  1. CARDIZEM CD [Concomitant]
     Indication: ATRIAL FIBRILLATION
     Dosage: 240 MG
     Route: 048
  2. THYROID TAB [Concomitant]
     Indication: HYPOTHYROIDISM
     Dosage: 240 MG
     Route: 048
  3. MAXZIDE [Concomitant]
     Dosage: 25 MG
     Route: 048
  4. CALCIUM [Concomitant]
     Route: 048
  5. MAGNESIUM [Concomitant]
     Route: 048
  6. EPA [Concomitant]
     Route: 048
  7. PRADAXA [Suspect]
     Indication: ATRIAL FIBRILLATION
     Dosage: 300 MG
     Route: 048
     Dates: start: 20110103
  8. DHEA [Concomitant]
     Route: 048
  9. VITAMIN E [Concomitant]
     Route: 048
  10. VITAMIN D [Concomitant]
     Route: 048
  11. ASCORBIC ACID [Concomitant]
     Route: 048
  12. DIGOXIN [Concomitant]
     Indication: ATRIAL FIBRILLATION
     Route: 048
  13. PROGESTERONE [Concomitant]
     Route: 048
  14. PROBIOTIC [Concomitant]
     Route: 048
  15. POTASSIUM CHLORIDE [Concomitant]
     Dosage: 10 MEQ
     Route: 048
  16. SELENIUM [Concomitant]
     Route: 048
  17. VITAMIN B COMPLEX [Concomitant]
     Route: 048
  18. NIACIN [Concomitant]
     Dosage: 500 MG
     Route: 048

REACTIONS (1)
  - DYSPNOEA [None]
